FAERS Safety Report 18637483 (Version 2)
Quarter: 2020Q4

REPORT INFORMATION
  Report Type: Spontaneous
  Country: DE (occurrence: DE)
  Receive Date: 20201218
  Receipt Date: 20201223
  Transmission Date: 20210114
  Serious: Yes (Other)
  Sender: FDA-Public Use
  Company Number: DE-BAYER-2020-278196

PATIENT
  Age: 28 Year
  Sex: Female
  Weight: 56 kg

DRUGS (1)
  1. MIRENA [Suspect]
     Active Substance: LEVONORGESTREL
     Indication: CONTRACEPTION
     Dosage: 20 ?G PER DAY, CONTINOUSLY
     Route: 015
     Dates: start: 201901, end: 201912

REACTIONS (6)
  - Depression suicidal [Recovered/Resolved]
  - Anxiety [Recovered/Resolved]
  - Aggression [Recovered/Resolved]
  - Sleep disorder [Recovered/Resolved]
  - Panic attack [Recovered/Resolved]
  - Tension [Recovered/Resolved]

NARRATIVE: CASE EVENT DATE: 201902
